FAERS Safety Report 7056591-8 (Version None)
Quarter: 2010Q4

REPORT INFORMATION
  Report Type: 
  Country: None (occurrence: None)
  Receive Date: 20101021
  Receipt Date: 20101018
  Transmission Date: 20110411
  Serious: Yes (Hospitalization)
  Sender: FDA-Public Use
  Company Number: FR-MERCK-1002FRA00047

PATIENT
  Age: 63 Year
  Sex: Female

DRUGS (30)
  1. NOROXIN [Suspect]
     Indication: CYSTITIS
     Route: 048
     Dates: start: 20090905, end: 20090905
  2. FLUINDIONE [Suspect]
     Indication: DEEP VEIN THROMBOSIS
     Route: 048
     Dates: start: 20090805, end: 20090901
  3. FLUINDIONE [Suspect]
     Route: 048
     Dates: start: 20090902
  4. FLUINDIONE [Suspect]
     Route: 048
     Dates: start: 20090902
  5. FOSFOMYCIN TROMETHAMINE [Suspect]
     Indication: CYSTITIS
     Route: 048
     Dates: start: 20090903, end: 20090903
  6. GEMCITABINE [Suspect]
     Indication: SMALL CELL LUNG CANCER STAGE UNSPECIFIED
     Route: 042
     Dates: start: 20090825, end: 20090825
  7. GEMCITABINE [Suspect]
     Route: 042
     Dates: start: 20090714, end: 20090714
  8. GEMCITABINE [Suspect]
     Route: 042
     Dates: start: 20090728, end: 20090728
  9. GEMCITABINE [Suspect]
     Route: 042
     Dates: start: 20090804, end: 20090804
  10. GEMCITABINE [Suspect]
     Route: 042
     Dates: start: 20090901, end: 20090901
  11. GEMCITABINE [Suspect]
     Route: 042
     Dates: start: 20090707, end: 20090707
  12. CISPLATIN [Suspect]
     Indication: SMALL CELL LUNG CANCER STAGE UNSPECIFIED
     Route: 042
     Dates: start: 20090707, end: 20090707
  13. CISPLATIN [Suspect]
     Route: 042
     Dates: start: 20090728, end: 20090728
  14. CISPLATIN [Suspect]
     Route: 042
     Dates: start: 20090825, end: 20090825
  15. BEVACIZUMAB [Suspect]
     Indication: SMALL CELL LUNG CANCER STAGE UNSPECIFIED
     Route: 042
     Dates: start: 20090707, end: 20090707
  16. BEVACIZUMAB [Suspect]
     Route: 042
     Dates: start: 20090728, end: 20090728
  17. BEVACIZUMAB [Suspect]
     Route: 042
     Dates: start: 20090825, end: 20090825
  18. PREDNISOLONE SODIUM METAZOATE [Concomitant]
     Route: 048
  19. ESCITALOPRAM OXALATE [Concomitant]
     Route: 048
  20. BROMAZEPAM [Concomitant]
     Route: 048
  21. FERROUS SULFATE [Concomitant]
     Indication: ANAEMIA
     Route: 048
  22. PANTOPRAZOLE SODIUM [Concomitant]
     Route: 048
  23. OXETHAZAINE [Concomitant]
     Route: 048
  24. LACTULOSE [Concomitant]
     Route: 048
  25. MINERAL OIL [Concomitant]
     Route: 048
  26. EPOETIN ALFA [Concomitant]
     Route: 051
  27. METOCLOPRAMIDE HYDROCHLORIDE [Concomitant]
     Route: 048
  28. MORPHINE SULFATE [Concomitant]
     Route: 048
  29. MORPHINE SULFATE [Concomitant]
     Route: 048
  30. ACETAMINOPHEN [Concomitant]
     Route: 048

REACTIONS (1)
  - INTERNATIONAL NORMALISED RATIO INCREASED [None]
